FAERS Safety Report 7344624-0 (Version None)
Quarter: 2011Q1

REPORT INFORMATION
  Report Type: 
  Country: None (occurrence: None)
  Receive Date: 20110310
  Receipt Date: 20101122
  Transmission Date: 20110831
  Serious: Yes (Hospitalization, Disabling, Other)
  Sender: FDA-Public Use
  Company Number: US-JNJFOC-M-730016

PATIENT
  Age: 40 Year
  Sex: Female

DRUGS (4)
  1. BENZTROPINE MESYLATE [Concomitant]
     Indication: MANIA
     Route: 065
  2. HALDOL [Suspect]
     Dosage: AVERAGE DOSAGE OF 45 MG PER DAY RANGING FROM 20 TO 70 MG PER DAY
     Route: 048
  3. LITHIUM CARBONATE [Interacting]
     Indication: MANIA
     Route: 065
  4. HALDOL [Suspect]
     Indication: MANIA
     Dosage: AVERAGE DOSAGE OF 45 MG PER DAY RANGING FROM 20 TO 70 MG PER DAY
     Route: 048

REACTIONS (5)
  - INCORRECT DOSE ADMINISTERED [None]
  - TOXIC ENCEPHALOPATHY [None]
  - DRUG INTERACTION [None]
  - PARKINSONISM [None]
  - DEMENTIA [None]
